FAERS Safety Report 25589229 (Version 1)
Quarter: 2025Q3

REPORT INFORMATION
  Report Type: Spontaneous
  Country: CN (occurrence: CN)
  Receive Date: 20250722
  Receipt Date: 20250722
  Transmission Date: 20251021
  Serious: Yes (Other)
  Sender: Unknown Manufacturer
  Company Number: CN-STRIDES ARCOLAB LIMITED-2025OS000128

PATIENT
  Age: 63 Year
  Sex: Female

DRUGS (11)
  1. ETOPOSIDE [Suspect]
     Active Substance: ETOPOSIDE
     Indication: B-cell lymphoma
     Route: 065
  2. RITUXIMAB [Suspect]
     Active Substance: RITUXIMAB
     Indication: B-cell lymphoma
     Route: 065
  3. RITUXIMAB [Suspect]
     Active Substance: RITUXIMAB
     Route: 065
  4. RITUXIMAB [Suspect]
     Active Substance: RITUXIMAB
     Route: 065
  5. CYCLOPHOSPHAMIDE [Suspect]
     Active Substance: CYCLOPHOSPHAMIDE
     Indication: B-cell lymphoma
     Route: 065
  6. CYCLOPHOSPHAMIDE [Suspect]
     Active Substance: CYCLOPHOSPHAMIDE
     Route: 065
  7. CYCLOPHOSPHAMIDE [Suspect]
     Active Substance: CYCLOPHOSPHAMIDE
     Route: 065
  8. PIRARUBICIN [Suspect]
     Active Substance: PIRARUBICIN
     Indication: B-cell lymphoma
     Route: 065
  9. DOXORUBICIN [Concomitant]
     Active Substance: DOXORUBICIN
     Indication: B-cell lymphoma
     Route: 065
  10. VINCRISTINE [Concomitant]
     Active Substance: VINCRISTINE
     Indication: B-cell lymphoma
     Route: 065
  11. PREDNISONE [Concomitant]
     Active Substance: PREDNISONE
     Indication: B-cell lymphoma
     Route: 065

REACTIONS (2)
  - Neoplasm progression [Unknown]
  - Off label use [Unknown]
